FAERS Safety Report 7564483-0 (Version None)
Quarter: 2011Q2

REPORT INFORMATION
  Report Type: 
  Country: None (occurrence: None)
  Receive Date: 20110622
  Receipt Date: 20110621
  Transmission Date: 20111010
  Serious: Yes (Life-Threatening, Hospitalization)
  Sender: FDA-Public Use
  Company Number: PHHO2011ES10569

PATIENT
  Sex: Male
  Weight: 83 kg

DRUGS (5)
  1. VARDENAFIL HYDROCHLORIDE (LEVITRA) [Suspect]
     Indication: ERECTILE DYSFUNCTION
     Dosage: UNK
  2. ALPRAZOLAM [Concomitant]
  3. PRAVASTATIN [Concomitant]
  4. TRETINOIN [Concomitant]
  5. TASIGNA [Suspect]
     Indication: GASTROINTESTINAL STROMAL TUMOUR
     Dosage: 800 MG, UNK
     Route: 048
     Dates: start: 20100612, end: 20110620

REACTIONS (2)
  - MYOCARDIAL INFARCTION [None]
  - DYSLIPIDAEMIA [None]
